FAERS Safety Report 25366910 (Version 2)
Quarter: 2025Q2

REPORT INFORMATION
  Report Type: Spontaneous
  Country: GB (occurrence: GB)
  Receive Date: 20250528
  Receipt Date: 20250530
  Transmission Date: 20250717
  Serious: Yes (Hospitalization, Other)
  Sender: ORGANON
  Company Number: None

PATIENT
  Age: 73 Year
  Sex: Male
  Weight: 71 kg

DRUGS (4)
  1. NASONEX [Suspect]
     Active Substance: MOMETASONE FUROATE
  2. AMLODIPINE [Concomitant]
     Active Substance: AMLODIPINE BESYLATE
     Indication: Adverse drug reaction
  3. LANSOPRAZOLE [Concomitant]
     Active Substance: LANSOPRAZOLE
     Indication: Gastrooesophageal reflux disease
  4. CARBOMER [Concomitant]
     Active Substance: CARBOMER
     Indication: Dry eye

REACTIONS (2)
  - Epistaxis [Recovering/Resolving]
  - Haemorrhage [Unknown]

NARRATIVE: CASE EVENT DATE: 20240514
